FAERS Safety Report 18651927 (Version 3)
Quarter: 2021Q1

REPORT INFORMATION
  Report Type: Report from Study
  Country: US (occurrence: US)
  Receive Date: 20201222
  Receipt Date: 20210310
  Transmission Date: 20210419
  Serious: Yes (Life-Threatening, Hospitalization, Other)
  Sender: FDA-Public Use
  Company Number: US-JNJFOC-20201228931

PATIENT
  Age: 45 Year
  Sex: Female

DRUGS (6)
  1. SPRAVATO [Suspect]
     Active Substance: ESKETAMINE
     Dates: start: 20200814, end: 20200814
  2. PREDNISONE. [Suspect]
     Active Substance: PREDNISONE
     Indication: PRODUCT USED FOR UNKNOWN INDICATION
     Route: 065
  3. SPRAVATO [Suspect]
     Active Substance: ESKETAMINE
     Indication: DEPRESSION
     Dosage: 56MG, 6 TOTAL DOSES
     Dates: start: 20200328, end: 20200415
  4. SPRAVATO [Suspect]
     Active Substance: ESKETAMINE
     Dosage: 84MG, 27 TOTAL DOSES
     Dates: start: 20200418, end: 20200902
  5. SPRAVATO [Suspect]
     Active Substance: ESKETAMINE
     Dosage: MOST RECENT
     Dates: start: 20201211, end: 20201211
  6. SPRAVATO [Suspect]
     Active Substance: ESKETAMINE
     Dosage: 84MG, 20 TOTAL DOSES
     Dates: start: 20200909, end: 20201209

REACTIONS (5)
  - Sedation [Recovered/Resolved]
  - Cardiovascular disorder [Recovering/Resolving]
  - Dissociation [Recovered/Resolved]
  - Cardiac failure congestive [Recovering/Resolving]
  - Pneumonia [Unknown]

NARRATIVE: CASE EVENT DATE: 20201211
